FAERS Safety Report 24197094 (Version 1)
Quarter: 2024Q3

REPORT INFORMATION
  Report Type: Spontaneous
  Country: US (occurrence: US)
  Receive Date: 20240810
  Receipt Date: 20240810
  Transmission Date: 20241016
  Serious: Yes (Other)
  Sender: SANOFI AVENTIS
  Company Number: US-SA-SAC20240808000711

PATIENT
  Sex: Male

DRUGS (3)
  1. OXALIPLATIN [Suspect]
     Active Substance: OXALIPLATIN
     Indication: Product used for unknown indication
     Dosage: UNK
     Route: 065
  2. TUKYSA [Concomitant]
     Active Substance: TUCATINIB
     Indication: Product used for unknown indication
     Dosage: UNK
     Dates: start: 20240708
  3. AUGMENTIN [Concomitant]
     Active Substance: AMOXICILLIN\CLAVULANATE POTASSIUM
     Indication: Ear infection
     Dosage: UNK

REACTIONS (4)
  - Neuropathy peripheral [Unknown]
  - Feeling abnormal [Recovered/Resolved]
  - Asthenia [Unknown]
  - Diarrhoea [Recovering/Resolving]
